FAERS Safety Report 10412496 (Version 1)
Quarter: 2014Q2

REPORT INFORMATION
  Report Type: Spontaneous
  Country: US (occurrence: None)
  Receive Date: 20140604
  Receipt Date: 20140604
  Transmission Date: 20141212
  Serious: Yes (Disabling)
  Sender: FDA-Public Use
  Company Number: 163-POMAL-14023540

PATIENT
  Age: 45 Year
  Sex: Male

DRUGS (1)
  1. POMALYST (POMALIDOMIDE) (CAPSULES) [Suspect]
     Indication: PLASMA CELL MYELOMA
     Route: 048
     Dates: start: 20140123

REACTIONS (3)
  - Chest pain [None]
  - Fatigue [None]
  - Oropharyngeal pain [None]
